FAERS Safety Report 7568603-3 (Version None)
Quarter: 2011Q2

REPORT INFORMATION
  Report Type: 
  Country: None (occurrence: None)
  Receive Date: 20110623
  Receipt Date: 20110615
  Transmission Date: 20111010
  Serious: No
  Sender: FDA-Public Use
  Company Number: FR-JNJFOC-20110608942

PATIENT
  Age: 78 Year
  Sex: Male

DRUGS (6)
  1. TRAMADOL HCL [Concomitant]
     Route: 065
  2. CYMBALTA [Concomitant]
  3. ANDROCUR [Concomitant]
  4. DURAGESIC-100 [Suspect]
     Indication: PROSTATE CANCER
     Route: 062
  5. NEXIUM [Concomitant]
  6. LEVOTHYROXINE SODIUM [Concomitant]

REACTIONS (1)
  - INAPPROPRIATE SCHEDULE OF DRUG ADMINISTRATION [None]
